FAERS Safety Report 13469013 (Version 1)
Quarter: 2017Q2

REPORT INFORMATION
  Report Type: Spontaneous
  Country: US (occurrence: US)
  Receive Date: 20170421
  Receipt Date: 20170421
  Transmission Date: 20170830
  Serious: Yes (Other)
  Sender: FDA-Public Use
  Company Number: US-TEVA-761317USA

PATIENT
  Sex: Male

DRUGS (1)
  1. TENUATE [Suspect]
     Active Substance: DIETHYLPROPION HYDROCHLORIDE
     Route: 065
     Dates: start: 201704

REACTIONS (5)
  - Product substitution issue [Unknown]
  - Coeliac disease [Unknown]
  - Diarrhoea [Unknown]
  - Diarrhoea haemorrhagic [Unknown]
  - Gastrointestinal disorder [Unknown]

NARRATIVE: CASE EVENT DATE: 201704
